FAERS Safety Report 4339818-2 (Version None)
Quarter: 2004Q2

REPORT INFORMATION
  Report Type: 
  Country: None (occurrence: None)
  Receive Date: 20040414
  Receipt Date: 20040414
  Transmission Date: 20050107
  Serious: Yes (Hospitalization)
  Sender: FDA-Public Use
  Company Number: None

PATIENT
  Sex: Male
  Weight: 6.2 kg

DRUGS (1)
  1. ERYTHROMYCIN [Suspect]
     Indication: CONJUNCTIVITIS
     Dosage: 1/2 TEASPOON PO TID
     Route: 048

REACTIONS (1)
  - ACQUIRED PYLORIC STENOSIS [None]
